FAERS Safety Report 17434301 (Version 5)
Quarter: 2021Q1

REPORT INFORMATION
  Report Type: Spontaneous
  Country: US (occurrence: US)
  Receive Date: 20200219
  Receipt Date: 20210309
  Transmission Date: 20210419
  Serious: Yes (Hospitalization, Other)
  Sender: FDA-Public Use
  Company Number: US-PFIZER INC-2020071586

PATIENT
  Age: 63 Year
  Sex: Female

DRUGS (1)
  1. LYRICA [Suspect]
     Active Substance: PREGABALIN
     Dosage: UNK

REACTIONS (9)
  - Inflammation [Unknown]
  - Nervousness [Unknown]
  - COVID-19 [Unknown]
  - Amnesia [Unknown]
  - Illness [Unknown]
  - Asthenia [Unknown]
  - Rash [Unknown]
  - Head discomfort [Unknown]
  - Memory impairment [Unknown]
